FAERS Safety Report 9262120 (Version 2)
Quarter: 2013Q2

REPORT INFORMATION
  Report Type: Spontaneous
  Country: US (occurrence: US)
  Receive Date: 20130430
  Receipt Date: 20130510
  Transmission Date: 20140414
  Serious: Yes (Life-Threatening, Hospitalization)
  Sender: FDA-Public Use
  Company Number: US-009507513-1304USA016368

PATIENT
  Age: 49 Year
  Sex: Female

DRUGS (2)
  1. PRINIVIL [Suspect]
     Indication: HYPERTENSION
     Route: 048
  2. METFORMIN [Concomitant]

REACTIONS (2)
  - Oedema mouth [Recovered/Resolved]
  - Lip swelling [Recovered/Resolved]
